FAERS Safety Report 6665321-0 (Version None)
Quarter: 2010Q1

REPORT INFORMATION
  Report Type: 
  Country: None (occurrence: None)
  Receive Date: 20100331
  Receipt Date: 20100323
  Transmission Date: 20100710
  Serious: Yes (Other)
  Sender: FDA-Public Use
  Company Number: RB-05610-2010

PATIENT
  Age: 69 Year
  Sex: Female

DRUGS (1)
  1. MUCINEX [Suspect]
     Dosage: 1200 MG 1X/12 HOURS TOOK 1 TABLET EVERY 12 HOURS ORAL
     Route: 048

REACTIONS (1)
  - HALLUCINATION [None]
